FAERS Safety Report 25030282 (Version 2)
Quarter: 2025Q2

REPORT INFORMATION
  Report Type: Spontaneous
  Country: US (occurrence: US)
  Receive Date: 20250303
  Receipt Date: 20250417
  Transmission Date: 20250717
  Serious: Yes (Hospitalization)
  Sender: BRISTOL MYERS SQUIBB
  Company Number: US-BRISTOL-MYERS SQUIBB COMPANY-2025-029116

PATIENT
  Age: 73 Year
  Sex: Male

DRUGS (2)
  1. POMALYST [Suspect]
     Active Substance: POMALIDOMIDE
     Indication: Plasma cell myeloma
     Dosage: TAKE 1 WHOLE CAP ON EMPTY STOMACH (1HR BEFORE/2HRS AFTER MEAL) AT SAME TIME DAILY FOR 21 DAYS ON 7 D
     Route: 048
  2. POMALYST [Suspect]
     Active Substance: POMALIDOMIDE
     Dosage: TAKE 1 CAPSULE WHOLE BY MOUTH ON AN EMPTY STOMACH EVERY DAY FOR 14 DAYS OF A 21-DAY CYCLE
     Route: 048

REACTIONS (2)
  - Haematological infection [Recovered/Resolved]
  - Urinary tract infection [Not Recovered/Not Resolved]
